FAERS Safety Report 10338209 (Version 1)
Quarter: 2014Q3

REPORT INFORMATION
  Report Type: Spontaneous
  Country: US (occurrence: US)
  Receive Date: 20140724
  Receipt Date: 20140724
  Transmission Date: 20150326
  Serious: No
  Sender: FDA-Public Use
  Company Number: US-PFIZER INC-2014205722

PATIENT
  Age: 28 Year
  Sex: Female
  Weight: 83.9 kg

DRUGS (1)
  1. LYRICA [Suspect]
     Active Substance: PREGABALIN
     Indication: TEMPOROMANDIBULAR JOINT SYNDROME
     Dosage: 50 MG, 2X/DAY
     Dates: end: 201407

REACTIONS (2)
  - Feeling abnormal [Not Recovered/Not Resolved]
  - Inflammation [Not Recovered/Not Resolved]

NARRATIVE: CASE EVENT DATE: 201407
